FAERS Safety Report 7764552-6 (Version None)
Quarter: 2011Q3

REPORT INFORMATION
  Report Type: 
  Country: None (occurrence: None)
  Receive Date: 20110921
  Receipt Date: 20110919
  Transmission Date: 20111222
  Serious: Yes (Other)
  Sender: FDA-Public Use
  Company Number: US-PFIZER INC-2011222511

PATIENT
  Sex: Female
  Weight: 57 kg

DRUGS (11)
  1. FOSAMAX [Concomitant]
     Indication: BONE DISORDER
     Dosage: 70 MG, WEEKLY
     Route: 048
  2. SYNTHROID [Concomitant]
     Indication: THYROID DISORDER
     Dosage: 125 UG, DAILY
     Route: 048
  3. NEXIUM [Concomitant]
     Indication: GASTROOESOPHAGEAL REFLUX DISEASE
     Dosage: 40 MG, DAILY
     Route: 048
  4. ASPIRIN [Concomitant]
     Indication: CARDIAC DISORDER
     Dosage: 81 MG, DAILY
  5. METOPROLOL [Concomitant]
     Indication: CARDIAC DISORDER
     Dosage: 25 MG, 2X/DAY
  6. LIPITOR [Suspect]
     Indication: BLOOD CHOLESTEROL INCREASED
     Dosage: 80 MG, DAILY
     Route: 048
  7. NIASPAN [Concomitant]
     Indication: BLOOD CHOLESTEROL INCREASED
     Dosage: 500 MG, DAILY
     Route: 048
  8. ZETIA [Suspect]
     Indication: BLOOD CHOLESTEROL INCREASED
     Dosage: UNK, DAILY
     Route: 048
  9. CO-Q-10 [Concomitant]
     Dosage: UNK
  10. ZOLOFT [Concomitant]
     Indication: DEPRESSION
     Dosage: 50 MG, DAILY
     Route: 048
  11. VITAMIN TAB [Concomitant]
     Dosage: UNK

REACTIONS (1)
  - CORONARY ARTERY BYPASS [None]
